FAERS Safety Report 25306493 (Version 2)
Quarter: 2025Q3

REPORT INFORMATION
  Report Type: Report from Study
  Country: JP (occurrence: JP)
  Receive Date: 20250513
  Receipt Date: 20250702
  Transmission Date: 20251021
  Serious: Yes (Hospitalization)
  Sender: EISAI
  Company Number: JP-Eisai-202501518_LEQ_P_1

PATIENT
  Age: 83 Year
  Sex: Male
  Weight: 51 kg

DRUGS (10)
  1. LEQEMBI [Suspect]
     Active Substance: LECANEMAB-IRMB
     Indication: Dementia Alzheimer^s type
     Dates: start: 20240529, end: 20241113
  2. ELOBIXIBAT [Concomitant]
     Active Substance: ELOBIXIBAT
  3. LEVOTHYROXINE [Concomitant]
     Active Substance: LEVOTHYROXINE
  4. DAPAGLIFLOZIN [Concomitant]
     Active Substance: DAPAGLIFLOZIN
  5. FEBUXOSTAT [Concomitant]
     Active Substance: FEBUXOSTAT
  6. LIVALO [Concomitant]
     Active Substance: PITAVASTATIN CALCIUM
  7. TRELEGY ELLIPTA [Concomitant]
     Active Substance: FLUTICASONE FUROATE\UMECLIDINIUM BROMIDE\VILANTEROL TRIFENATATE
  8. TRICHLORMETHIAZIDE [Concomitant]
     Active Substance: TRICHLORMETHIAZIDE
  9. LOKELMA [Concomitant]
     Active Substance: SODIUM ZIRCONIUM CYCLOSILICATE
  10. BIO-THREE [Concomitant]
     Active Substance: HERBALS

REACTIONS (1)
  - Cerebral infarction [Unknown]
